FAERS Safety Report 10051360 (Version 5)
Quarter: 2014Q2

REPORT INFORMATION
  Report Type: Spontaneous
  Country: US (occurrence: US)
  Receive Date: 20140401
  Receipt Date: 20140624
  Transmission Date: 20141212
  Serious: Yes (Hospitalization)
  Sender: FDA-Public Use
  Company Number: US-PFIZER INC-2014088281

PATIENT
  Age: 58 Year
  Sex: Female

DRUGS (3)
  1. XALKORI [Suspect]
     Indication: LUNG NEOPLASM MALIGNANT
     Dosage: 250 MG, 2X/DAY
     Dates: start: 20140129
  2. XALKORI [Suspect]
     Dosage: 250 MG, 2X/DAY
     Dates: start: 20140130
  3. XALKORI [Suspect]
     Dosage: 250 MG, 1X/DAY

REACTIONS (6)
  - Dizziness [Unknown]
  - Dyspnoea [Unknown]
  - Swelling [Unknown]
  - Cardiac disorder [Unknown]
  - Fluid retention [Unknown]
  - Weight increased [Unknown]
